FAERS Safety Report 6601296-8 (Version None)
Quarter: 2010Q1

REPORT INFORMATION
  Report Type: 
  Country: None (occurrence: None)
  Receive Date: 20100224
  Receipt Date: 20100224
  Transmission Date: 20100710
  Serious: Yes (Hospitalization)
  Sender: FDA-Public Use
  Company Number: None

PATIENT
  Sex: Male
  Weight: 80 kg

DRUGS (2)
  1. ZOLADEX [Suspect]
     Dosage: 10.8 MG
  2. TAXOTERE [Suspect]
     Dosage: 147 MG

REACTIONS (6)
  - ATELECTASIS [None]
  - BODY TEMPERATURE INCREASED [None]
  - NAUSEA [None]
  - PLEURAL EFFUSION [None]
  - PULMONARY EMBOLISM [None]
  - SINUS TACHYCARDIA [None]
